FAERS Safety Report 7645093-3 (Version None)
Quarter: 2011Q3

REPORT INFORMATION
  Report Type: 
  Country: None (occurrence: None)
  Receive Date: 20110729
  Receipt Date: 20110722
  Transmission Date: 20111222
  Serious: Yes (Hospitalization, Other)
  Sender: FDA-Public Use
  Company Number: PHEH2010US03473

PATIENT
  Sex: Female

DRUGS (32)
  1. ZELNORM [Suspect]
     Indication: IRRITABLE BOWEL SYNDROME
  2. SKELAXIN [Concomitant]
  3. ASPIRIN [Concomitant]
  4. MOBIC [Concomitant]
  5. FLONASE [Concomitant]
  6. ASMANEX TWISTHALER [Concomitant]
  7. NEXIUM [Concomitant]
  8. ESTRATEST [Concomitant]
  9. CELEBREX [Concomitant]
  10. RISPERDAL [Concomitant]
  11. PREMARIN [Concomitant]
  12. METAMUCIL-2 [Concomitant]
  13. TIAZAC [Concomitant]
  14. CLARITIN [Concomitant]
  15. NEURONTIN [Concomitant]
  16. TRAZODONE HCL [Concomitant]
  17. TRAMADOL HCL [Concomitant]
  18. SINGULAIR [Concomitant]
  19. PRILOSEC [Concomitant]
  20. ANTIBIOTICS [Concomitant]
  21. LIPITOR [Concomitant]
  22. REGLAN [Concomitant]
  23. GLUCOPHAGE [Concomitant]
  24. DIOVAN HCT [Concomitant]
  25. VERAPAMIL [Concomitant]
  26. PROZAC [Concomitant]
  27. LIPITOR [Concomitant]
  28. ZELNORM [Suspect]
     Indication: GASTRIC DISORDER
  29. UNIVASC [Concomitant]
  30. LYRICA [Concomitant]
  31. AMLODIPINE BESYLATE [Concomitant]
  32. MAGNESIUM OXIDE [Concomitant]

REACTIONS (10)
  - CARDIAC DISORDER [None]
  - COUGH [None]
  - CHEST PAIN [None]
  - INJURY [None]
  - NASAL CONGESTION [None]
  - HYPOAESTHESIA [None]
  - POLYURIA [None]
  - PAIN [None]
  - WHEEZING [None]
  - OEDEMA [None]
